FAERS Safety Report 17201050 (Version 1)
Quarter: 2019Q4

REPORT INFORMATION
  Report Type: Report from Study
  Country: US (occurrence: US)
  Receive Date: 20191226
  Receipt Date: 20191226
  Transmission Date: 20200122
  Serious: Yes (Death, Hospitalization)
  Sender: FDA-Public Use
  Company Number: PHHO2019US003723

PATIENT
  Age: 59 Year
  Sex: Male
  Weight: 57.14 kg

DRUGS (2)
  1. DOXORUBICIN [Suspect]
     Active Substance: DOXORUBICIN
     Indication: NEOPLASM MALIGNANT
     Dosage: 60 MG/M2, UNK
     Route: 042
     Dates: start: 20180925, end: 20190123
  2. KISQALI [Suspect]
     Active Substance: RIBOCICLIB
     Indication: NEOPLASM MALIGNANT
     Dosage: 600 MG, UNK
     Route: 048
     Dates: start: 20180925, end: 20190404

REACTIONS (2)
  - Small intestinal obstruction [Not Recovered/Not Resolved]
  - Death [Fatal]

NARRATIVE: CASE EVENT DATE: 20190327
